FAERS Safety Report 5308502-0 (Version None)
Quarter: 2007Q2

REPORT INFORMATION
  Report Type: 
  Country: None (occurrence: None)
  Receive Date: 20070424
  Receipt Date: 20070424
  Transmission Date: 20071010
  Serious: Yes (Hospitalization)
  Sender: FDA-Public Use
  Company Number: None

PATIENT
  Sex: Female
  Weight: 75.2 kg

DRUGS (12)
  1. TAXOL [Suspect]
     Dosage: 183 MG
     Route: 042
     Dates: start: 20070327
  2. ASPIRIN [Concomitant]
  3. DILANTIN [Concomitant]
  4. DIOVAN [Concomitant]
  5. FERROUS SULFATE TAB [Concomitant]
  6. HYDROCHLOROTHYAZIDE [Concomitant]
  7. LABETALOL HCL [Concomitant]
  8. LIPITOR [Concomitant]
  9. MOTRIN [Concomitant]
  10. MULTI-VITAMIN [Concomitant]
  11. NORVASC [Concomitant]
  12. SYNTHROID [Concomitant]

REACTIONS (9)
  - BLOOD CREATININE INCREASED [None]
  - BLOOD MAGNESIUM DECREASED [None]
  - DEHYDRATION [None]
  - DIARRHOEA [None]
  - DIZZINESS [None]
  - FREQUENT BOWEL MOVEMENTS [None]
  - GASTROENTERITIS VIRAL [None]
  - NAUSEA [None]
  - PYREXIA [None]
